FAERS Safety Report 5479904-7 (Version None)
Quarter: 2007Q4

REPORT INFORMATION
  Report Type: 
  Country: None (occurrence: None)
  Receive Date: 20071008
  Receipt Date: 20070924
  Transmission Date: 20080405
  Serious: No
  Sender: FDA-Public Use
  Company Number: US-BOEHRINGER INGELHEIM PHARMACEUTICALS, INC.-2007-BP-18382BP

PATIENT
  Sex: Male

DRUGS (6)
  1. COMBIVENT [Suspect]
     Indication: CHRONIC OBSTRUCTIVE PULMONARY DISEASE
     Route: 055
     Dates: start: 20060101
  2. ADVAIR DISKUS 100/50 [Concomitant]
  3. PROSCAR [Concomitant]
  4. SPIRIVA [Concomitant]
  5. FOSAMAX [Concomitant]
  6. FINASTERIDE [Concomitant]

REACTIONS (1)
  - DYSGEUSIA [None]
